FAERS Safety Report 24356671 (Version 1)
Quarter: 2024Q3

REPORT INFORMATION
  Report Type: Report from Study
  Country: CO (occurrence: CO)
  Receive Date: 20240924
  Receipt Date: 20240924
  Transmission Date: 20241017
  Serious: Yes (Death, Hospitalization, Other)
  Sender: UCB
  Company Number: CO-UCBSA-2024048720

PATIENT
  Age: 68 Year
  Sex: Female

DRUGS (4)
  1. ROTIGOTINE [Suspect]
     Active Substance: ROTIGOTINE
     Indication: Parkinson^s disease
     Dosage: 8 MILLIGRAM, 2X/DAY (BID) (STARTED WITH A DOSE OF 16 MG BY DOCTOR^S ORDER; TO OBTAIN THE DOSE SHE US
     Route: 062
     Dates: start: 20190925, end: 20240812
  2. LEVODOPA [Concomitant]
     Active Substance: LEVODOPA
     Indication: Product used for unknown indication
     Dosage: UNK
  3. RASAGILINE [Concomitant]
     Active Substance: RASAGILINE\RASAGILINE MESYLATE
     Indication: Product used for unknown indication
     Dosage: UNK
  4. AMANTADINE [Concomitant]
     Active Substance: AMANTADINE
     Indication: Product used for unknown indication
     Dosage: UNK

REACTIONS (8)
  - Cardiac failure [Fatal]
  - Lung disorder [Unknown]
  - Renal disorder [Unknown]
  - Lumbar puncture [Unknown]
  - Anaemia [Unknown]
  - Bacterial infection [Unknown]
  - Off label use [Unknown]
  - Overdose [Unknown]

NARRATIVE: CASE EVENT DATE: 20190925
